FAERS Safety Report 12101767 (Version 1)
Quarter: 2016Q1

REPORT INFORMATION
  Report Type: Spontaneous
  Country: US (occurrence: US)
  Receive Date: 20160222
  Receipt Date: 20160222
  Transmission Date: 20160526
  Serious: Yes (Hospitalization)
  Sender: FDA-Public Use
  Company Number: US-CELGENEUS-USA-2016023970

PATIENT
  Sex: Male

DRUGS (1)
  1. REVLIMID [Suspect]
     Active Substance: LENALIDOMIDE
     Indication: COMPLEX REGIONAL PAIN SYNDROME
     Dosage: 10 MILLIGRAM
     Route: 048
     Dates: start: 200803

REACTIONS (1)
  - Thrombosis [Unknown]
